FAERS Safety Report 6787875-6 (Version None)
Quarter: 2010Q2

REPORT INFORMATION
  Report Type: 
  Country: None (occurrence: None)
  Receive Date: 20100623
  Receipt Date: 20071018
  Transmission Date: 20101027
  Serious: Yes (Hospitalization)
  Sender: FDA-Public Use
  Company Number: DE-PFIZER INC-2007088044

PATIENT
  Age: 45 Year
  Sex: Female
  Weight: 78 kg

DRUGS (5)
  1. ELLENCE [Suspect]
     Route: 042
     Dates: start: 20070529, end: 20070529
  2. NEUPOGEN [Suspect]
     Indication: CHEMOTHERAPY
     Route: 058
     Dates: start: 20070602, end: 20070606
  3. DEXAMETHASONE ACETATE [Suspect]
     Route: 042
     Dates: start: 20070529, end: 20070529
  4. NAVOBAN [Suspect]
     Dates: start: 20070529, end: 20070529
  5. DOCETAXEL [Suspect]
     Route: 042
     Dates: start: 20070529, end: 20070529

REACTIONS (3)
  - LEUKOPENIA [None]
  - PHARYNGITIS [None]
  - PYREXIA [None]
